FAERS Safety Report 4577101-0 (Version None)
Quarter: 2005Q1

REPORT INFORMATION
  Report Type: 
  Country: None (occurrence: None)
  Receive Date: 20050210
  Receipt Date: 20050110
  Transmission Date: 20050727
  Serious: Yes (Death)
  Sender: FDA-Public Use
  Company Number: GB-ROCHE-391917

PATIENT
  Age: 29 Year
  Sex: Male

DRUGS (16)
  1. DIAZEPAM [Suspect]
     Indication: DRUG WITHDRAWAL SYNDROME
     Dosage: REGIMEN REPORTED AS PRN
     Route: 048
  2. ROHYPNOL [Suspect]
     Indication: DRUG WITHDRAWAL SYNDROME
     Dosage: REGIMEN REPORTED AS PRN
     Route: 048
  3. HEMINEVRIN [Suspect]
     Indication: DRUG WITHDRAWAL SYNDROME
     Route: 048
     Dates: start: 20010831
  4. OMEPRAZOLE [Suspect]
     Indication: DRUG WITHDRAWAL SYNDROME
     Route: 048
  5. CLONIDINE [Suspect]
     Indication: DRUG WITHDRAWAL SYNDROME
     Dosage: REGIMEN RPEORTED AS PRN
     Route: 048
  6. LORAZEPAM [Suspect]
     Indication: DRUG WITHDRAWAL SYNDROME
     Dosage: REGIMEN REPORTED AS PRN
     Route: 048
  7. TEMAZEPAM [Suspect]
     Indication: DRUG WITHDRAWAL SYNDROME
     Dosage: REGIMEN REPORTED AS PRN
     Route: 048
  8. CHLORPROMAZINE [Suspect]
     Indication: DRUG WITHDRAWAL SYNDROME
     Dosage: REGIMEN REPORTED PRN
     Route: 048
  9. OCTREOTIDE [Suspect]
     Indication: ANTIDIARRHOEAL SUPPORTIVE CARE
     Route: 058
  10. METOCLOPRAMIDE [Suspect]
     Indication: DRUG WITHDRAWAL SYNDROME
     Route: 058
  11. PROCHLORPERAZINE MALEATE [Suspect]
     Indication: DRUG WITHDRAWAL SYNDROME
     Route: 048
  12. BUSCOPAN [Suspect]
     Indication: DRUG WITHDRAWAL SYNDROME
     Dosage: REGIMEN REPORTED AS PRN
     Route: 048
  13. NALTREXONE [Suspect]
     Indication: DRUG WITHDRAWAL SYNDROME
     Route: 048
  14. ACUPAN [Suspect]
     Indication: DRUG WITHDRAWAL SYNDROME
     Route: 048
  15. VOLTAROL [Suspect]
     Indication: DRUG WITHDRAWAL SYNDROME
     Route: 048
  16. ZOFRAN [Suspect]
     Indication: DRUG WITHDRAWAL SYNDROME
     Dosage: REGIMEN REPORTED AS PRN
     Route: 048

REACTIONS (1)
  - ASPIRATION [None]
